FAERS Safety Report 4424259-X (Version None)
Quarter: 2004Q3

REPORT INFORMATION
  Report Type: 
  Country: None (occurrence: None)
  Receive Date: 20040715
  Receipt Date: 20040510
  Transmission Date: 20050211
  Serious: Yes (Hospitalization)
  Sender: FDA-Public Use
  Company Number: 2004212543US

PATIENT
  Age: 43 Year
  Sex: Female

DRUGS (3)
  1. CELEBREX [Suspect]
     Indication: ARTHRALGIA
     Dosage: 200 MG, BID,
     Dates: start: 20040407, end: 20040503
  2. PREMARIN [Concomitant]
  3. NEXIUM [Concomitant]

REACTIONS (5)
  - ABDOMINAL PAIN LOWER [None]
  - DIFFICULTY IN WALKING [None]
  - DYSURIA [None]
  - OEDEMA PERIPHERAL [None]
  - RASH [None]
